FAERS Safety Report 6401161-5 (Version None)
Quarter: 2009Q4

REPORT INFORMATION
  Report Type: 
  Country: None (occurrence: None)
  Receive Date: 20091009
  Receipt Date: 20090929
  Transmission Date: 20100525
  Serious: Yes (Other)
  Sender: FDA-Public Use
  Company Number: 230311K09BRA

PATIENT
  Age: 48 Year
  Sex: Female

DRUGS (8)
  1. REBIF [Suspect]
     Indication: RELAPSING-REMITTING MULTIPLE SCLEROSIS
     Dosage: 44 MCG, 3 IN 1 WEEKS
     Dates: start: 20081128
  2. VENLAFAXINE HCL [Concomitant]
  3. TEGRETOL [Concomitant]
  4. LEXOTAM (BROMAZEPAM) [Concomitant]
  5. SEROQUEL [Concomitant]
  6. LITHIUM CARBONATE [Concomitant]
  7. ACETAMINOPHEN [Concomitant]
  8. DIPYRONE (METAMIZOLE SODIUM) [Concomitant]

REACTIONS (16)
  - AMENORRHOEA [None]
  - ASTHENIA [None]
  - BALANCE DISORDER [None]
  - DIARRHOEA [None]
  - HEADACHE [None]
  - INJECTION SITE HAEMATOMA [None]
  - INJECTION SITE PAIN [None]
  - MENORRHAGIA [None]
  - MENSTRUATION IRREGULAR [None]
  - MYALGIA [None]
  - NECK PAIN [None]
  - OEDEMA PERIPHERAL [None]
  - PAIN IN EXTREMITY [None]
  - SUICIDE ATTEMPT [None]
  - VOMITING [None]
  - WEIGHT INCREASED [None]
